FAERS Safety Report 10842198 (Version 5)
Quarter: 2015Q2

REPORT INFORMATION
  Report Type: Spontaneous
  Country: IT (occurrence: IT)
  Receive Date: 20150220
  Receipt Date: 20150518
  Transmission Date: 20150821
  Serious: Yes (Death)
  Sender: FDA-Public Use
  Company Number: IT-ROCHE-1540733

PATIENT
  Age: 53 Year
  Sex: Female

DRUGS (8)
  1. LASIX [Concomitant]
     Active Substance: FUROSEMIDE
  2. RIBAVIRIN. [Suspect]
     Active Substance: RIBAVIRIN
     Indication: CHRONIC HEPATITIS C
     Route: 048
     Dates: start: 20140922, end: 20150123
  3. SOFOSBUVIR [Suspect]
     Active Substance: SOFOSBUVIR
     Indication: CHRONIC HEPATITIS C
     Route: 048
     Dates: start: 20140922, end: 20150123
  4. KANRENOL [Concomitant]
     Active Substance: CANRENOATE POTASSIUM
  5. LACTITOL [Concomitant]
     Active Substance: LACTITOL
  6. RIFAXIMIN [Concomitant]
     Active Substance: RIFAXIMIN
  7. AMINO ACID [Concomitant]
  8. ALBUMIN [Concomitant]
     Active Substance: ALBUMIN (HUMAN)

REACTIONS (2)
  - Condition aggravated [Fatal]
  - Coma [Fatal]

NARRATIVE: CASE EVENT DATE: 20150123
